FAERS Safety Report 24915089 (Version 1)
Quarter: 2025Q1

REPORT INFORMATION
  Report Type: Other
  Country: GB (occurrence: GB)
  Receive Date: 20250203
  Receipt Date: 20250203
  Transmission Date: 20250408
  Serious: Yes (Death)
  Sender: ANI
  Company Number: GB-ANIPHARMA-015518

PATIENT
  Age: 21 Year
  Sex: Female

DRUGS (6)
  1. CYCLOPHOSPHAMIDE [Suspect]
     Active Substance: CYCLOPHOSPHAMIDE
     Indication: Gestational trophoblastic tumour
  2. METHOTREXATE [Concomitant]
     Active Substance: METHOTREXATE
     Indication: Gestational trophoblastic tumour
  3. DACTINOMYCIN [Concomitant]
     Active Substance: DACTINOMYCIN
     Indication: Gestational trophoblastic tumour
     Route: 042
  4. CYCLOPHOSPHAMIDE [Suspect]
     Active Substance: CYCLOPHOSPHAMIDE
     Indication: Vaginal cancer metastatic
  5. METHOTREXATE [Concomitant]
     Active Substance: METHOTREXATE
     Indication: Vaginal cancer metastatic
  6. DACTINOMYCIN [Concomitant]
     Active Substance: DACTINOMYCIN
     Indication: Vaginal cancer metastatic
     Route: 042

REACTIONS (1)
  - Drug ineffective [Fatal]
